FAERS Safety Report 9979827 (Version 3)
Quarter: 2014Q1

REPORT INFORMATION
  Report Type: Spontaneous
  Country: JP (occurrence: JP)
  Receive Date: 20140307
  Receipt Date: 20140321
  Transmission Date: 20141002
  Serious: Yes (Death, Other)
  Sender: FDA-Public Use
  Company Number: JP-PFIZER INC-2013334995

PATIENT
  Age: 55 Year
  Sex: Male

DRUGS (18)
  1. ZYVOX [Suspect]
     Dosage: 600 MG, 2X/DAY
     Route: 042
     Dates: end: 20131119
  2. RIVOTRIL [Suspect]
     Dosage: 0.5 MG, 1X/DAY
     Route: 048
  3. GRACEPTOR [Concomitant]
     Dosage: 2 MG, 1X/DAY
     Route: 048
  4. CELLCEPT [Concomitant]
     Dosage: 250 MG, 2X/DAY
     Route: 048
  5. PREDNISOLONE [Concomitant]
     Dosage: 3 MG, 1X/DAY
     Route: 048
  6. LASIX [Concomitant]
     Dosage: 40 MG, 1X/DAY
     Route: 048
  7. ARTIST [Concomitant]
     Dosage: 10 MG, 1X/DAY
     Route: 048
  8. NEUER [Concomitant]
     Dosage: 200 MG, 3X/DAY
     Route: 048
  9. TAKEPRON OD [Concomitant]
     Dosage: 15 MG, 1X/DAY
     Route: 048
  10. URINORM [Concomitant]
     Dosage: 50 MG, 1X/DAY
     Route: 048
  11. CALCIUM LACTATE [Concomitant]
     Dosage: 1000 MG, 3X/DAY
     Route: 048
  12. MUCODYNE [Concomitant]
     Dosage: 500 MG, 3X/DAY
     Route: 048
  13. BIOFERMIN R [Concomitant]
     Dosage: UNK
     Route: 048
  14. COCARL [Concomitant]
     Dosage: 400 MG, 3X/DAY
     Route: 048
     Dates: start: 20131113
  15. SOLANTAL [Concomitant]
     Dosage: 100 MG, 3X/DAY
     Route: 048
     Dates: start: 20131114
  16. NOVORAPID [Concomitant]
     Dosage: 4 TO 6 IU, 3X/DAY
     Route: 058
  17. LANTUS [Concomitant]
     Dosage: 5 IU, 1X/DAY
     Route: 058
  18. FINIBAX [Concomitant]
     Dosage: 0.5 G, 3X/DAY
     Route: 042

REACTIONS (2)
  - Septic shock [Fatal]
  - Serotonin syndrome [Recovered/Resolved]
